FAERS Safety Report 22372353 (Version 4)
Quarter: 2023Q2

REPORT INFORMATION
  Report Type: Report from Study
  Country: FR (occurrence: FR)
  Receive Date: 20230526
  Receipt Date: 20230607
  Transmission Date: 20230721
  Serious: Yes (Death)
  Sender: FDA-Public Use
  Company Number: FR-002147023-NVSC2023FR118301

PATIENT
  Age: 76 Year
  Sex: Female

DRUGS (2)
  1. SPARTALIZUMAB [Suspect]
     Active Substance: SPARTALIZUMAB
     Indication: Oesophageal cancer metastatic
     Dosage: 300 MG, EVERY 1 DAY
     Route: 042
     Dates: start: 20220512, end: 20220512
  2. TABRECTA [Suspect]
     Active Substance: CAPMATINIB
     Indication: Oesophageal cancer metastatic
     Dosage: UNK
     Route: 048
     Dates: start: 20220529, end: 20220529

REACTIONS (1)
  - Lung disorder [Fatal]

NARRATIVE: CASE EVENT DATE: 20221108
